FAERS Safety Report 4316261-3 (Version None)
Quarter: 2004Q1

REPORT INFORMATION
  Report Type: 
  Country: None (occurrence: None)
  Receive Date: 20040310
  Receipt Date: 20030429
  Transmission Date: 20041129
  Serious: Yes (Other)
  Sender: FDA-Public Use
  Company Number: HQ3422222JUL2002

PATIENT
  Age: 34 Year
  Sex: Male

DRUGS (2)
  1. PROTONIX [Suspect]
     Indication: GASTRITIS
     Dosage: 40 MG 1 X PER 1 DAY ORAL
     Route: 048
     Dates: start: 20020502, end: 20020528
  2. EFFEXOR XR (VENLAFAXINE HYDRYCHLORIDE) [Concomitant]

REACTIONS (2)
  - DRY MOUTH [None]
  - GLOSSODYNIA [None]
